FAERS Safety Report 19439486 (Version 2)
Quarter: 2021Q3

REPORT INFORMATION
  Report Type: Report from Study
  Country: GB (occurrence: GB)
  Receive Date: 20210618
  Receipt Date: 20210726
  Transmission Date: 20211014
  Serious: Yes (Other)
  Sender: FDA-Public Use
  Company Number: GB-CELLTRION INC.-2021GB008091

PATIENT

DRUGS (21)
  1. DOCETAXEL. [Suspect]
     Active Substance: DOCETAXEL
     Dosage: 148 MG EVERY 3 WEEKS
     Route: 042
     Dates: start: 20170412, end: 20170614
  2. PERTUZUMAB. [Suspect]
     Active Substance: PERTUZUMAB
     Dosage: 420 MG/KG EVERY 3 WEEKS
     Route: 042
     Dates: start: 20170412
  3. PERTUZUMAB. [Suspect]
     Active Substance: PERTUZUMAB
     Dosage: 420 MG/KG EVERY 3 WEEKS
     Route: 042
     Dates: start: 20170412, end: 20180112
  4. TRASTUZUMAB (UNKNOWN) [Suspect]
     Active Substance: TRASTUZUMAB
     Dosage: 483 MG/KG
     Route: 041
     Dates: start: 20170228
  5. TRASTUZUMAB (UNKNOWN) [Suspect]
     Active Substance: TRASTUZUMAB
     Dosage: 514.5 MG EVERY 3 WEEKS
     Route: 041
     Dates: start: 20170412, end: 20170412
  6. EPIRUBICIN [Suspect]
     Active Substance: EPIRUBICIN
     Indication: BREAST CANCER
     Dosage: 140 MILLIGRAM EVERY 3 WEEKS
     Route: 042
     Dates: start: 20180525, end: 20180615
  7. EPIRUBICIN [Suspect]
     Active Substance: EPIRUBICIN
     Dosage: 140 MILLIGRAM EVERY 3 WEEKS
     Route: 042
     Dates: start: 20180525, end: 20180615
  8. DOCETAXEL. [Suspect]
     Active Substance: DOCETAXEL
     Dosage: 148 MG EVERY 3 WEEKS
     Route: 042
     Dates: start: 20170412
  9. DOCETAXEL. [Suspect]
     Active Substance: DOCETAXEL
     Dosage: 148 MG EVERY 3 WEEKS
     Route: 042
     Dates: start: 20170412
  10. EPIRUBICIN [Suspect]
     Active Substance: EPIRUBICIN
     Dosage: 180 MILLIGRAM EVERY 3 WEEKS
     Route: 042
     Dates: start: 20180223, end: 20180427
  11. TRASTUZUMAB (UNKNOWN) [Suspect]
     Active Substance: TRASTUZUMAB
     Indication: BREAST CANCER
     Dosage: 483 MG/KG
     Route: 041
     Dates: start: 20170228
  12. DOCETAXEL. [Suspect]
     Active Substance: DOCETAXEL
     Indication: BREAST CANCER
     Dosage: 148 MG EVERY 3 WEEKS
     Route: 042
     Dates: start: 20170412, end: 20170614
  13. TRASTUZUMAB (UNKNOWN) [Suspect]
     Active Substance: TRASTUZUMAB
     Dosage: 514.5 MG EVERY 3 WEEKS
     Route: 041
     Dates: start: 20170412, end: 20170412
  14. AMOXIL [Concomitant]
     Active Substance: AMOXICILLIN
     Indication: LOWER RESPIRATORY TRACT INFECTION
     Dosage: 1500 MG, QD
     Route: 048
     Dates: start: 20180102, end: 20180107
  15. DIFFLAM [Concomitant]
     Indication: MOUTH ULCERATION
     Dosage: 15 ML, PRN
     Route: 048
  16. PERTUZUMAB. [Suspect]
     Active Substance: PERTUZUMAB
     Indication: BREAST CANCER
     Dosage: 420 MG/KG EVERY 3 WEEKS
     Route: 042
     Dates: start: 20170412
  17. PERTUZUMAB. [Suspect]
     Active Substance: PERTUZUMAB
     Dosage: 420 MG/KG EVERY 3 WEEKS
     Route: 042
     Dates: start: 20170412, end: 20180112
  18. LACTULOSE. [Concomitant]
     Active Substance: LACTULOSE
     Indication: CONSTIPATION
     Dosage: 15 ML, QD
     Route: 048
  19. EPIRUBICIN [Suspect]
     Active Substance: EPIRUBICIN
     Dosage: 180 MILLIGRAM EVERY 3 WEEKS
     Route: 042
     Dates: start: 20180223, end: 20180427
  20. SENNA [Concomitant]
     Active Substance: SENNA LEAF\SENNOSIDES\SENNOSIDES A AND B
     Indication: CONSTIPATION
     Dosage: 30 MILLIGRAM, QD
     Route: 048
  21. CAPECITABINE. [Suspect]
     Active Substance: CAPECITABINE
     Indication: BREAST CANCER
     Dosage: 4000 MILLIGRAM, QD
     Route: 048
     Dates: start: 20200721

REACTIONS (2)
  - Overdose [Unknown]
  - Systolic dysfunction [Unknown]

NARRATIVE: CASE EVENT DATE: 20210216
